FAERS Safety Report 23525129 (Version 2)
Quarter: 2024Q1

REPORT INFORMATION
  Report Type: Spontaneous
  Country: US (occurrence: US)
  Receive Date: 20240215
  Receipt Date: 20240223
  Transmission Date: 20240409
  Serious: No
  Sender: FDA-Public Use
  Company Number: US-OPELLA-2024OHG004093

PATIENT
  Age: 4 Year
  Sex: Female

DRUGS (1)
  1. ALLEGRA ALLERGY [Suspect]
     Active Substance: FEXOFENADINE HYDROCHLORIDE
     Indication: Product used for unknown indication

REACTIONS (2)
  - Accidental exposure to product by child [Unknown]
  - No adverse event [Unknown]
